FAERS Safety Report 7318536-2 (Version None)
Quarter: 2011Q1

REPORT INFORMATION
  Report Type: 
  Country: None (occurrence: None)
  Receive Date: 20110217
  Receipt Date: 20110217
  Transmission Date: 20110831
  Serious: No
  Sender: FDA-Public Use
  Company Number: None

PATIENT
  Age: 30 Year
  Sex: Female
  Weight: 68.0396 kg

DRUGS (1)
  1. ZOLPIDEM [Suspect]
     Indication: INSOMNIA
     Dates: start: 20100201, end: 20110115

REACTIONS (13)
  - MIGRAINE [None]
  - NECK PAIN [None]
  - HYPOAESTHESIA [None]
  - HYPOPHAGIA [None]
  - CHOKING [None]
  - FOOD ALLERGY [None]
  - PAIN [None]
  - WEIGHT DECREASED [None]
  - EAR PAIN [None]
  - LOCAL SWELLING [None]
  - PHARYNGEAL OEDEMA [None]
  - PAIN IN JAW [None]
  - TEMPOROMANDIBULAR JOINT SYNDROME [None]
